FAERS Safety Report 17945382 (Version 2)
Quarter: 2020Q3

REPORT INFORMATION
  Report Type: Spontaneous
  Country: DE (occurrence: DE)
  Receive Date: 20200626
  Receipt Date: 20200723
  Transmission Date: 20201103
  Serious: Yes (Death, Hospitalization)
  Sender: FDA-Public Use
  Company Number: DE-CELLTRION INC.-2020DE023633

PATIENT

DRUGS (12)
  1. ETOPOSIDE. [Suspect]
     Active Substance: ETOPOSIDE
     Indication: HYPERTENSION
  2. ETOPOSIDE. [Suspect]
     Active Substance: ETOPOSIDE
     Indication: DIFFUSE LARGE B-CELL LYMPHOMA
     Dosage: PART OF R?DEVIC; LAST CYCLE 2 WKS BEFORE SARS?COV?2 INFECTION
     Route: 065
  3. IFOSFAMIDE. [Suspect]
     Active Substance: IFOSFAMIDE
     Indication: DIFFUSE LARGE B-CELL LYMPHOMA
     Dosage: AS PART OF R?DEVIC TREATMENT FOR SEVERAL MONTHS (LAST THERAPY CYCLE WAS ADMINISTERED 2 WEEKS BEFORE
  4. DEXAMETHASON [Suspect]
     Active Substance: DEXAMETHASONE
     Indication: HYPERTENSION
  5. IFOSFAMIDE. [Suspect]
     Active Substance: IFOSFAMIDE
     Indication: HYPERTENSION
  6. IBRUTINIB [Suspect]
     Active Substance: IBRUTINIB
     Indication: DIFFUSE LARGE B-CELL LYMPHOMA
     Dosage: UNK
     Route: 065
  7. PIPERACILLIN AND TAZOBACTAM [Concomitant]
     Active Substance: PIPERACILLIN SODIUM\TAZOBACTAM SODIUM
     Route: 065
  8. RITUXIMAB (UNKNOWN) [Suspect]
     Active Substance: RITUXIMAB
     Indication: DIFFUSE LARGE B-CELL LYMPHOMA
     Dosage: AS PART OF R?DEVIC TREATMENT FOR SEVERAL MONTHS (LAST THERAPY CYCLE WAS ADMINISTERED 2 WEEKS BEFORE
  9. DEXAMETHASON [Suspect]
     Active Substance: DEXAMETHASONE
     Indication: DIFFUSE LARGE B-CELL LYMPHOMA
     Dosage: AS PART OF R?DEVIC TREATMENT (FOR SEVERAL MONTHS), THE LAST DOSE WAS ADMINISTERED 2 WEEKS BEFORE SAR
  10. RITUXIMAB (UNKNOWN) [Suspect]
     Active Substance: RITUXIMAB
     Indication: HYPERTENSION
  11. CARBOPLATIN. [Suspect]
     Active Substance: CARBOPLATIN
     Indication: DIFFUSE LARGE B-CELL LYMPHOMA
     Dosage: AS PART OF R?DEVIC TREATMENT FOR SEVERAL MONTHS (LAST THERAPY CYCLE WAS ADMINISTERED 2 WEEKS BEFORE
  12. CARBOPLATIN. [Suspect]
     Active Substance: CARBOPLATIN
     Indication: HYPERTENSION

REACTIONS (4)
  - COVID-19 pneumonia [Fatal]
  - Pyrexia [Fatal]
  - Off label use [Unknown]
  - Respiratory failure [Fatal]
